FAERS Safety Report 5688450-7 (Version None)
Quarter: 2008Q1

REPORT INFORMATION
  Report Type: 
  Country: None (occurrence: None)
  Receive Date: 20080331
  Receipt Date: 20080227
  Transmission Date: 20080703
  Serious: No
  Sender: FDA-Public Use
  Company Number: US-BAYER-200716383NA

PATIENT
  Age: 80 Year
  Sex: Female

DRUGS (3)
  1. AVELOX [Suspect]
     Indication: ASTHMA
     Route: 042
     Dates: start: 20071101, end: 20071101
  2. AVELOX [Suspect]
     Indication: PNEUMONIA
     Dosage: TOTAL DAILY DOSE: 400 MG  UNIT DOSE: 400 MG
     Route: 048
     Dates: start: 20071113, end: 20071123
  3. VITAMINS [Concomitant]

REACTIONS (4)
  - MALAISE [None]
  - MUSCULOSKELETAL DISCOMFORT [None]
  - RASH PAPULAR [None]
  - RENAL PAIN [None]
